FAERS Safety Report 6504615-6 (Version None)
Quarter: 2009Q4

REPORT INFORMATION
  Report Type: 
  Country: None (occurrence: None)
  Receive Date: 20091215
  Receipt Date: 20091204
  Transmission Date: 20100525
  Serious: Yes (Hospitalization)
  Sender: FDA-Public Use
  Company Number: 2009AC000480

PATIENT
  Age: 62 Year
  Sex: Female

DRUGS (17)
  1. DIGOXIN [Suspect]
  2. PREVACID [Concomitant]
  3. ISOSORB [Concomitant]
  4. ASPIRIN [Concomitant]
  5. NITROGLYCERIN [Concomitant]
  6. CENTRIUM SILVER [Concomitant]
  7. VITAMIN C [Concomitant]
  8. HYDROCODONE [Concomitant]
  9. LOVASTATIN [Concomitant]
  10. MAGNESIUM [Concomitant]
  11. PROPRANOLOL [Concomitant]
  12. COMBIVENT [Concomitant]
  13. ADVAIR DISKUS 100/50 [Concomitant]
  14. PROTONIX [Concomitant]
  15. PREVPAC [Concomitant]
  16. LIPITOR [Concomitant]
  17. ZOCOR [Concomitant]

REACTIONS (8)
  - CHEST PAIN [None]
  - DIZZINESS [None]
  - DYSPNOEA [None]
  - DYSPNOEA PAROXYSMAL NOCTURNAL [None]
  - OEDEMA PERIPHERAL [None]
  - ORTHOPNOEA [None]
  - PAIN IN EXTREMITY [None]
  - SYNCOPE [None]
